FAERS Safety Report 5085811-4 (Version None)
Quarter: 2006Q3

REPORT INFORMATION
  Report Type: 
  Country: None (occurrence: None)
  Receive Date: 20060817
  Receipt Date: 20060810
  Transmission Date: 20061208
  Serious: Yes (Other)
  Sender: FDA-Public Use
  Company Number: 2006097846

PATIENT
  Sex: Male
  Weight: 79.8331 kg

DRUGS (3)
  1. LIPITOR [Suspect]
     Indication: BLOOD CHOLESTEROL INCREASED
     Dosage: 20 MG (20 MG, 1 IN 1 D)
     Dates: start: 20050101
  2. ALLOPURINOL [Concomitant]
  3. THIORIDAZINE HCL [Concomitant]

REACTIONS (4)
  - BLOOD CHOLESTEROL INCREASED [None]
  - BUTTOCK PAIN [None]
  - MYALGIA [None]
  - PAIN IN EXTREMITY [None]
